FAERS Safety Report 8600683-6 (Version None)
Quarter: 2012Q3

REPORT INFORMATION
  Report Type: 
  Country: None (occurrence: None)
  Receive Date: 20120817
  Receipt Date: 20120808
  Transmission Date: 20120928
  Serious: Yes (Other)
  Sender: FDA-Public Use
  Company Number: CA-JNJFOC-20120804880

PATIENT
  Sex: Female

DRUGS (16)
  1. TERAZOSIN HYDROCHLORIDE [Concomitant]
     Route: 048
  2. SYNTHROID [Concomitant]
     Route: 048
  3. ASPIRIN [Concomitant]
     Route: 048
  4. SIMPONI [Suspect]
     Indication: RHEUMATOID ARTHRITIS
     Route: 058
     Dates: start: 20110628, end: 20120731
  5. HYDROXYQUINOLINE [Concomitant]
     Route: 048
  6. NOVOLIN GE [Concomitant]
     Route: 058
  7. FOLIC ACID [Concomitant]
     Route: 048
  8. PANTOPRAZOLE [Concomitant]
     Route: 048
  9. CALCIUM/MAGNESIUM/ VITAMIN D3 [Concomitant]
     Route: 048
  10. AVALIDE [Concomitant]
     Route: 048
  11. DOMPERIDONE [Concomitant]
     Route: 048
  12. RASILEZ [Concomitant]
     Route: 048
  13. ATORVASTATIN [Concomitant]
     Route: 048
  14. AMLODIPINE [Concomitant]
     Route: 048
  15. ALENDRONATE SODIUM [Concomitant]
     Route: 048
  16. TRANDATE [Concomitant]
     Route: 048

REACTIONS (1)
  - BREAST CANCER [None]
